FAERS Safety Report 9698393 (Version 5)
Quarter: 2014Q2

REPORT INFORMATION
  Report Type: Spontaneous
  Country: JP (occurrence: JP)
  Receive Date: 20131120
  Receipt Date: 20140414
  Transmission Date: 20141212
  Serious: Yes (Death, Life-Threatening, Hospitalization, Other)
  Sender: FDA-Public Use
  Company Number: JP-009507513-1311JPN007144

PATIENT
  Age: 67 Year
  Sex: Male
  Weight: 74 kg

DRUGS (8)
  1. TEMODAL [Suspect]
     Indication: OLIGODENDROGLIOMA
     Dosage: 200 MG/M2, QD
     Route: 048
     Dates: start: 20080605, end: 20130312
  2. TEMODAL [Suspect]
     Dosage: 150 MG/M2, QD
     Route: 048
     Dates: start: 20080508, end: 20080513
  3. FERON [Suspect]
     Indication: OLIGODENDROGLIOMA
     Dosage: 3 MILLION-BILLION UNIT / DAILY DOSAGE UNKNOWN
     Route: 041
     Dates: start: 20031230, end: 20130418
  4. BAKTAR [Suspect]
     Indication: ANTIFUNGAL PROPHYLAXIS
     Dosage: 2 DF, BID
     Route: 048
     Dates: start: 20130508, end: 20131105
  5. MEROPEN [Suspect]
     Indication: PNEUMONIA
     Dosage: 1 G, BID
     Route: 041
     Dates: start: 20130708, end: 20130722
  6. CIPROXAN [Suspect]
     Indication: PNEUMONIA
     Dosage: 300 MG, QD
     Route: 041
     Dates: start: 20130710, end: 20130712
  7. ZITHROMAC [Suspect]
     Indication: PNEUMONIA
     Dosage: 500 MG, QD
     Route: 041
     Dates: start: 20130710, end: 20130712
  8. MINOPEN [Suspect]
     Indication: PNEUMONIA
     Dosage: 100 MG, QD
     Route: 041
     Dates: start: 20130714, end: 20130722

REACTIONS (3)
  - Acute myeloid leukaemia [Fatal]
  - Pneumonia [Recovered/Resolved]
  - Transfusion [Unknown]
